FAERS Safety Report 9298826 (Version 5)
Quarter: 2013Q4

REPORT INFORMATION
  Report Type: Report from Study
  Country: DE (occurrence: DE)
  Receive Date: 20130520
  Receipt Date: 20131112
  Transmission Date: 20140711
  Serious: Yes (Hospitalization)
  Sender: FDA-Public Use
  Company Number: DE-ROCHE-1215079

PATIENT
  Age: 70 Year
  Sex: Female
  Weight: 65 kg

DRUGS (8)
  1. BEVACIZUMAB [Suspect]
     Indication: BREAST CANCER
     Dosage: LAST DOSE PRIOR TO SAE: 03/APR/2013
     Route: 042
     Dates: start: 20120913
  2. CAPECITABINE [Suspect]
     Indication: BREAST CANCER
     Dosage: DAYS 1-14,LAST DOSE PRIOR TO SAE: 26/MAR/2013,TEMPORARILY INTERRUPTED
     Route: 048
     Dates: start: 20120913
  3. LOSARTAN [Concomitant]
  4. L-THYROXINE [Concomitant]
  5. TORASEMIDE [Concomitant]
     Route: 065
  6. EUTHYROX [Concomitant]
     Route: 065
  7. VITAMIN B9 [Concomitant]
  8. PANTOPRAZOL [Concomitant]
     Route: 065

REACTIONS (1)
  - Convulsion [Recovered/Resolved]
